FAERS Safety Report 9148681 (Version 2)
Quarter: 2013Q2

REPORT INFORMATION
  Report Type: Spontaneous
  Country: GB (occurrence: GB)
  Receive Date: 20130308
  Receipt Date: 20130429
  Transmission Date: 20140414
  Serious: Yes (Hospitalization)
  Sender: FDA-Public Use
  Company Number: GB-NOVOPROD-372032

PATIENT
  Age: 11 Year
  Sex: Female
  Weight: 26.4 kg

DRUGS (14)
  1. NORDITROPIN SIMPLEXX [Suspect]
     Indication: GROWTH HORMONE DEFICIENCY
     Dosage: 0.3 MG, QD
     Route: 058
     Dates: start: 20130221, end: 20130226
  2. NORDITROPIN SIMPLEXX [Suspect]
     Dosage: 0.3 MG, QD
     Route: 058
     Dates: start: 20130301
  3. CARBAMAZEPINE [Concomitant]
     Indication: PRODUCT USED FOR UNKNOWN INDICATION
  4. CLOBAZAM [Concomitant]
     Indication: PRODUCT USED FOR UNKNOWN INDICATION
  5. PHENYTOIN [Concomitant]
     Indication: PRODUCT USED FOR UNKNOWN INDICATION
  6. TOPIRAMATE [Concomitant]
     Indication: PRODUCT USED FOR UNKNOWN INDICATION
  7. ATENOLOL [Concomitant]
     Indication: PRODUCT USED FOR UNKNOWN INDICATION
  8. OMEPRAZOLE [Concomitant]
     Indication: PRODUCT USED FOR UNKNOWN INDICATION
  9. SYTRON [Concomitant]
     Indication: PRODUCT USED FOR UNKNOWN INDICATION
  10. CHLORAL HYDRATE [Concomitant]
     Indication: PRODUCT USED FOR UNKNOWN INDICATION
  11. GAVISCON                           /00237601/ [Concomitant]
     Indication: PRODUCT USED FOR UNKNOWN INDICATION
  12. SODIUM BICARBONATE [Concomitant]
     Indication: PRODUCT USED FOR UNKNOWN INDICATION
     Route: 001
  13. THYROXINE [Concomitant]
     Indication: PRODUCT USED FOR UNKNOWN INDICATION
  14. HYOSCINE [Concomitant]
     Indication: PRODUCT USED FOR UNKNOWN INDICATION

REACTIONS (1)
  - Cellulitis [Unknown]
